FAERS Safety Report 5082622-0 (Version None)
Quarter: 2006Q3

REPORT INFORMATION
  Report Type: 
  Country: None (occurrence: None)
  Receive Date: 20060814
  Receipt Date: 20060802
  Transmission Date: 20061208
  Serious: Yes (Other)
  Sender: FDA-Public Use
  Company Number: USA-2006-0024675

PATIENT
  Age: 21 Year
  Sex: Female

DRUGS (1)
  1. CEFDITOREN PIVOXIL (SIMILAR TO NDA 21-222) (CEFDITOREN PIVOXIL) UNKNOW [Suspect]
     Indication: PHARYNGITIS
     Dosage: 100 MG, DAILY, ORAL
     Route: 048
     Dates: start: 20060713, end: 20060713

REACTIONS (3)
  - ANAPHYLACTIC SHOCK [None]
  - DYSSTASIA [None]
  - OCULAR HYPERAEMIA [None]
